FAERS Safety Report 9040123 (Version 1)
Quarter: 2013Q1

REPORT INFORMATION
  Report Type: Report from Study
  Country: US (occurrence: US)
  Receive Date: 20130130
  Receipt Date: 20130130
  Transmission Date: 20140127
  Serious: No
  Sender: FDA-Public Use
  Company Number: US-ABBOTT-12P-163-0950754-00

PATIENT
  Age: 47 Year
  Sex: Female

DRUGS (5)
  1. HUMIRA 40 MG/0.8 ML PEN [Suspect]
     Indication: PSORIATIC ARTHROPATHY
     Dates: start: 20120521
  2. ADVIL [Suspect]
     Indication: PSORIATIC ARTHROPATHY
     Dosage: UP TO 3 PILLS A DAY
  3. TYLENOL [Suspect]
     Indication: PSORIATIC ARTHROPATHY
     Dosage: UP TO 3 PILLS A DAY
  4. TRAMADOL [Suspect]
     Indication: PRODUCT USED FOR UNKNOWN INDICATION
  5. UNKNOWN MEDICATION(S) [Concomitant]
     Indication: PRODUCT USED FOR UNKNOWN INDICATION

REACTIONS (4)
  - Abnormal dreams [Not Recovered/Not Resolved]
  - Rhinorrhoea [Not Recovered/Not Resolved]
  - Lacrimation increased [Not Recovered/Not Resolved]
  - Nasopharyngitis [Not Recovered/Not Resolved]
